FAERS Safety Report 14537349 (Version 2)
Quarter: 2018Q2

REPORT INFORMATION
  Report Type: Spontaneous
  Country: IE (occurrence: IE)
  Receive Date: 20180215
  Receipt Date: 20180403
  Transmission Date: 20180711
  Serious: Yes (Life-Threatening, Hospitalization)
  Sender: FDA-Public Use
  Company Number: IE-SA-2018SA036444

PATIENT
  Age: 55 Year
  Sex: Male

DRUGS (6)
  1. TOUJEO [Suspect]
     Active Substance: INSULIN GLARGINE
     Route: 058
  2. SOLOSTAR [Suspect]
     Active Substance: DEVICE
  3. SOLOSTAR [Suspect]
     Active Substance: DEVICE
     Dates: end: 20170106
  4. NOVOMIX [Concomitant]
     Active Substance: INSULIN ASPART
     Route: 065
  5. TOUJEO [Suspect]
     Active Substance: INSULIN GLARGINE
     Dosage: DOSE:12 UNIT(S)
     Route: 058
     Dates: end: 20170106
  6. ACTRAPID [Suspect]
     Active Substance: INSULIN HUMAN
     Route: 042
     Dates: start: 20170104, end: 20170106

REACTIONS (3)
  - Blood glucose increased [Recovered/Resolved]
  - Blood ketone body increased [Recovered/Resolved]
  - Diabetic ketoacidosis [Recovered/Resolved]
